FAERS Safety Report 4792913-6 (Version None)
Quarter: 2005Q4

REPORT INFORMATION
  Report Type: 
  Country: None (occurrence: None)
  Receive Date: 20051010
  Receipt Date: 20050803
  Transmission Date: 20060501
  Serious: Yes (Hospitalization)
  Sender: FDA-Public Use
  Company Number: IT-ROCHE-412801

PATIENT
  Age: 56 Year
  Sex: Female

DRUGS (5)
  1. PEG-INTERFERON ALFA 2A (RO 25-8310) [Suspect]
     Route: 058
     Dates: start: 20050111, end: 20050208
  2. PEG-INTERFERON ALFA 2A (RO 25-8310) [Suspect]
     Route: 058
     Dates: start: 20050215, end: 20050621
  3. RIBAVIRIN [Suspect]
     Route: 048
     Dates: start: 20050111, end: 20050627
  4. TIMOLOL MALEATE [Concomitant]
     Indication: GLAUCOMA
     Dates: start: 20030615
  5. ESOMEPRAZOLE [Concomitant]
     Dates: start: 20050117

REACTIONS (1)
  - AUTOIMMUNE THYROIDITIS [None]
